FAERS Safety Report 14340865 (Version 2)
Quarter: 2018Q1

REPORT INFORMATION
  Report Type: Report from Study
  Country: US (occurrence: US)
  Receive Date: 20180102
  Receipt Date: 20180103
  Transmission Date: 20180509
  Serious: Yes (Other)
  Sender: FDA-Public Use
  Company Number: US-ROCHE-2023696

PATIENT
  Age: 69 Year
  Sex: Male

DRUGS (15)
  1. ALBUTEROL SULFATE. [Concomitant]
     Active Substance: ALBUTEROL SULFATE
     Dosage: 108 MCG/ACT
     Route: 065
     Dates: start: 2008
  2. XALATAN [Concomitant]
     Active Substance: LATANOPROST
     Route: 065
     Dates: start: 20170315
  3. NORVASC [Concomitant]
     Active Substance: AMLODIPINE BESYLATE
     Route: 065
     Dates: start: 20080110
  4. VITAMIN C [Concomitant]
     Active Substance: ASCORBIC ACID
     Route: 065
  5. RITUXIMAB. [Suspect]
     Active Substance: RITUXIMAB
     Indication: CHRONIC LYMPHOCYTIC LEUKAEMIA
     Dosage: LAST TREATMENT: 11/OCT/2017
     Route: 042
     Dates: start: 20170622
  6. ACYCLOVIR. [Concomitant]
     Active Substance: ACYCLOVIR
     Route: 065
     Dates: start: 20170621
  7. ASPIRIN. [Concomitant]
     Active Substance: ASPIRIN
     Route: 065
  8. RANITIDINE. [Concomitant]
     Active Substance: RANITIDINE
     Route: 065
     Dates: start: 20170621
  9. TRIAMTERENE AND HYDROCHLOROTHIAZIDE [Concomitant]
     Active Substance: HYDROCHLOROTHIAZIDE\TRIAMTERENE
     Dosage: 37.5 TO 25 MG
     Route: 065
  10. ZOLPIDEM [Concomitant]
     Active Substance: ZOLPIDEM\ZOLPIDEM TARTRATE
     Route: 065
  11. BENDAMUSTINE [Suspect]
     Active Substance: BENDAMUSTINE
     Indication: CHRONIC LYMPHOCYTIC LEUKAEMIA
     Dosage: LAST TREATMENT: C5D1: 11/OCT/2017 AND 12/OCT/2017
     Route: 042
     Dates: start: 20170621
  12. DORZOLAMIDE [Concomitant]
     Active Substance: DORZOLAMIDE
     Dosage: 22.3 TO 6.8 MG/ML
     Route: 065
     Dates: start: 20170417
  13. TYLENOL [Concomitant]
     Active Substance: ACETAMINOPHEN
     Route: 065
  14. ATORVASTATIN [Concomitant]
     Active Substance: ATORVASTATIN
     Route: 065
  15. FLOVENT [Concomitant]
     Active Substance: FLUTICASONE PROPIONATE

REACTIONS (2)
  - Basal cell carcinoma [Unknown]
  - Neutropenia [Recovered/Resolved]

NARRATIVE: CASE EVENT DATE: 20171108
